FAERS Safety Report 9903517 (Version 3)
Quarter: 2014Q1

REPORT INFORMATION
  Report Type: Spontaneous
  Country: SI (occurrence: SI)
  Receive Date: 20140217
  Receipt Date: 20140303
  Transmission Date: 20141002
  Serious: Yes (Other)
  Sender: FDA-Public Use
  Company Number: SI-ABBVIE-14P-261-1200119-00

PATIENT
  Age: 64 Year
  Sex: Male
  Weight: 72 kg

DRUGS (5)
  1. HUMIRA [Suspect]
     Indication: ANKYLOSING SPONDYLITIS
     Route: 058
     Dates: start: 20090611, end: 20130730
  2. ASPIRIN [Concomitant]
     Indication: CEREBROVASCULAR ACCIDENT
     Route: 048
     Dates: start: 2009
  3. CONTROLOC [Concomitant]
     Indication: DYSPEPSIA
     Route: 048
     Dates: start: 2009
  4. METHOTREXATE [Concomitant]
     Indication: ANKYLOSING SPONDYLITIS
     Route: 058
     Dates: start: 2010
  5. FOLIC ACID [Concomitant]
     Indication: ANKYLOSING SPONDYLITIS
     Dates: start: 2010

REACTIONS (1)
  - Red blood cell count increased [Recovered/Resolved]
